FAERS Safety Report 25615578 (Version 1)
Quarter: 2025Q3

REPORT INFORMATION
  Report Type: Spontaneous
  Country: CN (occurrence: CN)
  Receive Date: 20250729
  Receipt Date: 20250729
  Transmission Date: 20251020
  Serious: Yes (Life-Threatening, Hospitalization)
  Sender: ROCHE
  Company Number: CN-ROCHE-10000347949

PATIENT
  Age: 59 Year
  Sex: Female

DRUGS (3)
  1. TOCILIZUMAB [Suspect]
     Active Substance: TOCILIZUMAB
     Indication: Interstitial lung disease
     Route: 042
     Dates: start: 20250719, end: 20250719
  2. SODIUM CHLORIDE [Suspect]
     Active Substance: SODIUM CHLORIDE
     Indication: Interstitial lung disease
     Route: 042
     Dates: start: 20250719, end: 20250719
  3. ESOMEPRAZOLE [Concomitant]
     Active Substance: ESOMEPRAZOLE

REACTIONS (2)
  - Anaphylactic shock [Recovering/Resolving]
  - Off label use [Unknown]

NARRATIVE: CASE EVENT DATE: 20250719
